FAERS Safety Report 13717151 (Version 3)
Quarter: 2017Q4

REPORT INFORMATION
  Report Type: Report from Study
  Country: BR (occurrence: BR)
  Receive Date: 20170705
  Receipt Date: 20171116
  Transmission Date: 20180320
  Serious: Yes (Hospitalization)
  Sender: FDA-Public Use
  Company Number: BR-UCBSA-2017025503

PATIENT
  Age: 64 Year
  Sex: Male

DRUGS (1)
  1. LEVETIRACETAM. [Suspect]
     Active Substance: LEVETIRACETAM
     Indication: EPILEPSY
     Dosage: 250MG TWICE DAILY, WITH 1 TABLET IN THE MORNING AND 2 TABLETS IN THE EVENING
     Dates: start: 20170101, end: 2017

REACTIONS (5)
  - Intentional product misuse [Unknown]
  - Bronchitis [Recovered/Resolved]
  - Seizure [Unknown]
  - Urinary tract infection [Recovered/Resolved]
  - Influenza [Recovered/Resolved]

NARRATIVE: CASE EVENT DATE: 201701
